FAERS Safety Report 17866149 (Version 5)
Quarter: 2020Q2

REPORT INFORMATION
  Report Type: Spontaneous
  Country: HU (occurrence: HU)
  Receive Date: 20200605
  Receipt Date: 20200623
  Transmission Date: 20200714
  Serious: Yes (Hospitalization, Other)
  Sender: FDA-Public Use
  Company Number: NVSC2020HU139592

PATIENT
  Age: 62 Year
  Sex: Male
  Weight: 93 kg

DRUGS (14)
  1. EBRANTIL [Suspect]
     Active Substance: URAPIDIL
     Indication: BLOOD PRESSURE MEASUREMENT
     Dosage: UNK (170/90)
     Route: 065
  2. LETROX [Concomitant]
     Active Substance: LEVOTHYROXINE SODIUM
     Indication: PRODUCT USED FOR UNKNOWN INDICATION
     Dosage: 87.5 UG
     Route: 065
  3. AMLODIPINE [Concomitant]
     Active Substance: AMLODIPINE BESYLATE
     Indication: PRODUCT USED FOR UNKNOWN INDICATION
     Dosage: UNK
     Route: 065
  4. CEFZIL [Interacting]
     Active Substance: CEFPROZIL
     Indication: UPPER RESPIRATORY TRACT INFECTION
     Dosage: UNK
     Route: 065
  5. CLEXAN [Concomitant]
     Active Substance: ENOXAPARIN SODIUM
     Dosage: 0.8 MILLILITER, BID
     Route: 058
     Dates: start: 202002
  6. DIFLUCAN [Interacting]
     Active Substance: FLUCONAZOLE
     Indication: CANDIDA INFECTION
     Dosage: 50 MILLIGRAM, QD
     Route: 065
     Dates: start: 20200228
  7. ELIQUIS [Interacting]
     Active Substance: APIXABAN
     Indication: CEREBROVASCULAR ACCIDENT PROPHYLAXIS
     Dosage: 10 UNK, QD
     Route: 065
     Dates: start: 202002
  8. QUAMATEL [Concomitant]
     Active Substance: FAMOTIDINE
     Indication: PRODUCT USED FOR UNKNOWN INDICATION
     Dosage: 40 MG, QD
     Route: 065
  9. FLUCONAZOLE. [Suspect]
     Active Substance: FLUCONAZOLE
     Indication: CANDIDA INFECTION
     Dosage: 50 MILLIGRAM, QD
     Route: 065
     Dates: start: 20200228
  10. ALFUZOSIN [Concomitant]
     Active Substance: ALFUZOSIN
     Indication: PRODUCT USED FOR UNKNOWN INDICATION
     Dosage: 1 DF, QD (1 TABLET IN THE EVENING)
     Route: 065
  11. CLEXAN [Concomitant]
     Active Substance: ENOXAPARIN SODIUM
     Indication: ATRIAL FIBRILLATION
     Dosage: UNK
     Route: 065
  12. IRBESARTAN. [Interacting]
     Active Substance: IRBESARTAN
     Indication: HYPERTENSION
     Dosage: 150 MG, QHS
     Route: 065
  13. CLEXAN [Concomitant]
     Active Substance: ENOXAPARIN SODIUM
     Dosage: UNK
     Route: 065
  14. CLEXAN [Concomitant]
     Active Substance: ENOXAPARIN SODIUM
     Dosage: 0.8 ML, 2X/DAY
     Route: 065

REACTIONS (9)
  - Upper respiratory tract infection [Not Recovered/Not Resolved]
  - Atrial fibrillation [Unknown]
  - Hypertension [Recovered/Resolved]
  - Prescribed overdose [Unknown]
  - Angina pectoris [Unknown]
  - Off label use [Unknown]
  - Drug interaction [Recovered/Resolved]
  - Hypertension [Recovered/Resolved]
  - Candida infection [Unknown]

NARRATIVE: CASE EVENT DATE: 20200227
